FAERS Safety Report 17082628 (Version 2)
Quarter: 2020Q1

REPORT INFORMATION
  Report Type: Spontaneous
  Country: FI (occurrence: FI)
  Receive Date: 20191127
  Receipt Date: 20200122
  Transmission Date: 20200409
  Serious: Yes (Death, Other)
  Sender: FDA-Public Use
  Company Number: FI-HQ SPECIALTY-FI-2019INT000298

PATIENT
  Age: 57 Year
  Sex: Male

DRUGS (5)
  1. PROPOFOL. [Concomitant]
     Active Substance: PROPOFOL
     Indication: PRODUCT USED FOR UNKNOWN INDICATION
     Dosage: UNK
     Route: 065
  2. DEXMEDETOMIDINE HYDROCHLORIDE. [Suspect]
     Active Substance: DEXMEDETOMIDINE HYDROCHLORIDE
     Indication: SEDATION
     Dosage: 40 ML/DAY (DOSE WAS HIGH, INCREASED TO UNK) (1 HR)
     Route: 041
     Dates: start: 20190726, end: 20190728
  3. DIGOXIN. [Concomitant]
     Active Substance: DIGOXIN
     Indication: HYPERTENSION
     Dosage: 1 AMPOULE IN THE MORNING, MAYBE 0.5MG, CANNOT REMEMBER THE DOSE, NASO-GASTRIC TUBE
     Route: 050
  4. SELOKEN                            /00376902/ [Concomitant]
     Active Substance: METOPROLOL TARTRATE
     Indication: HYPERTENSION
     Dosage: 5 MG, IN MORNING, NASO-GASTRIC TUBE
     Route: 050
  5. MERONEM [Concomitant]
     Active Substance: MEROPENEM
     Indication: PRODUCT USED FOR UNKNOWN INDICATION
     Dosage: UNK
     Route: 042

REACTIONS (8)
  - Heart rate increased [Unknown]
  - Sedation complication [Unknown]
  - Oxygen saturation decreased [Unknown]
  - Circulatory collapse [Unknown]
  - Cardiogenic shock [Unknown]
  - Death [Fatal]
  - Pyrexia [Unknown]
  - Atrial fibrillation [Unknown]

NARRATIVE: CASE EVENT DATE: 201907
